FAERS Safety Report 12943162 (Version 2)
Quarter: 2022Q4

REPORT INFORMATION
  Report Type: Spontaneous
  Country: US (occurrence: US)
  Receive Date: 20161115
  Receipt Date: 20221020
  Transmission Date: 20230113
  Serious: No
  Sender: FDA-Public Use
  Company Number: US-NOVOPROD-466507

PATIENT
  Age: 40 Year
  Sex: Female

DRUGS (3)
  1. VAGIFEM [Suspect]
     Active Substance: ESTRADIOL
     Indication: Dyspareunia
     Dosage: UNK
     Route: 067
  2. OSPHENA [Suspect]
     Active Substance: OSPEMIFENE
     Indication: Atrophy
  3. OSPHENA [Suspect]
     Active Substance: OSPEMIFENE
     Indication: Dyspareunia
     Dosage: UNK
     Route: 048
     Dates: start: 2014

REACTIONS (2)
  - Hyperplasia [Unknown]
  - Off label use [Unknown]
